FAERS Safety Report 14506032 (Version 3)
Quarter: 2018Q1

REPORT INFORMATION
  Report Type: Report from Study
  Country: US (occurrence: US)
  Receive Date: 20180208
  Receipt Date: 20180322
  Transmission Date: 20180509
  Serious: Yes (Other)
  Sender: FDA-Public Use
  Company Number: PHEH2018US004913

PATIENT
  Age: 57 Year
  Sex: Female
  Weight: 170 kg

DRUGS (1)
  1. GILENYA [Suspect]
     Active Substance: FINGOLIMOD HYDROCHLORIDE
     Indication: MULTIPLE SCLEROSIS
     Dosage: 0.5 MG, QD
     Route: 048
     Dates: start: 20170714, end: 20180121

REACTIONS (2)
  - Macular oedema [Unknown]
  - Eye swelling [Unknown]

NARRATIVE: CASE EVENT DATE: 20180118
